FAERS Safety Report 17299108 (Version 2)
Quarter: 2020Q1

REPORT INFORMATION
  Report Type: Spontaneous
  Country: US (occurrence: US)
  Receive Date: 20200122
  Receipt Date: 20200123
  Transmission Date: 20200409
  Serious: Yes (Hospitalization, Other)
  Sender: FDA-Public Use
  Company Number: US-SA-2020SA013527

PATIENT
  Age: 64 Year
  Sex: Male

DRUGS (1)
  1. ALPROLIX [Suspect]
     Active Substance: EFTRENONACOG ALFA
     Dosage: 4710 IU, Q3D
     Route: 042
     Dates: start: 20200111

REACTIONS (2)
  - Ulcer haemorrhage [Recovering/Resolving]
  - Neoplasm malignant [Recovering/Resolving]
